FAERS Safety Report 4323252-5 (Version None)
Quarter: 2004Q1

REPORT INFORMATION
  Report Type: 
  Country: None (occurrence: None)
  Receive Date: 20040322
  Receipt Date: 20040308
  Transmission Date: 20041129
  Serious: Yes (Life-Threatening, Hospitalization, Disabling)
  Sender: FDA-Public Use
  Company Number: UK064836

PATIENT
  Age: 51 Year
  Sex: Male
  Weight: 89 kg

DRUGS (7)
  1. NEULASTA [Suspect]
     Indication: CHEMOTHERAPY
     Dosage: 6 MG, 1 IN 1 AS NECESSAFY, SC
     Route: 058
     Dates: start: 20040106, end: 20040106
  2. BLEOMYCIN SULFATE [Suspect]
     Dates: start: 20031229, end: 20040105
  3. ETOPOSIDE [Suspect]
     Dates: start: 20031229, end: 20040102
  4. CISPLATIN [Suspect]
     Dates: start: 20031229, end: 20040102
  5. METOCLOPRAMIDE [Concomitant]
  6. ZOPHREN [Concomitant]
  7. METHYLPREDNISOLONE [Concomitant]

REACTIONS (10)
  - ARTERIAL THROMBOSIS LIMB [None]
  - BONE MARROW DEPRESSION [None]
  - COAGULATION FACTOR VIII LEVEL INCREASED [None]
  - DEHYDRATION [None]
  - DRUG INEFFECTIVE [None]
  - GANGRENE [None]
  - LEG AMPUTATION [None]
  - PERIPHERAL ISCHAEMIA [None]
  - POLYCYTHAEMIA [None]
  - VOMITING [None]
